FAERS Safety Report 6693208-6 (Version None)
Quarter: 2010Q2

REPORT INFORMATION
  Report Type: 
  Country: None (occurrence: None)
  Receive Date: 20100421
  Receipt Date: 20100421
  Transmission Date: 20101027
  Serious: Yes (Other)
  Sender: FDA-Public Use
  Company Number: None

PATIENT
  Age: 56 Year
  Sex: Female

DRUGS (1)
  1. AVAPRO [Suspect]
     Indication: HYPERTENSION
     Dosage: 300MG C4HANGED BY ME TO 150MG ONCE A DAY PO
     Route: 048
     Dates: start: 20100409, end: 20100418

REACTIONS (3)
  - DRUG INEFFECTIVE [None]
  - MYALGIA [None]
  - OEDEMA PERIPHERAL [None]
